FAERS Safety Report 10011325 (Version 2)
Quarter: 2014Q2

REPORT INFORMATION
  Report Type: Spontaneous
  Country: CH (occurrence: None)
  Receive Date: 20140311
  Receipt Date: 20140407
  Transmission Date: 20141212
  Serious: Yes (Death, Other)
  Sender: FDA-Public Use
  Company Number: 2014CH003058

PATIENT
  Age: 45 Year
  Sex: Male
  Weight: 73 kg

DRUGS (1)
  1. PONATINIB [Suspect]
     Indication: CHRONIC MYELOID LEUKAEMIA
     Route: 048
     Dates: start: 20130425, end: 20130708

REACTIONS (8)
  - Chronic myeloid leukaemia [None]
  - Neoplasm progression [None]
  - Drug resistance [None]
  - Brain stem stroke [None]
  - Brain stem thrombosis [None]
  - Thrombosis [None]
  - Hepatic necrosis [None]
  - Thrombocytosis [None]
